FAERS Safety Report 5068050-2 (Version None)
Quarter: 2006Q3

REPORT INFORMATION
  Report Type: 
  Country: None (occurrence: None)
  Receive Date: 20060728
  Receipt Date: 20060710
  Transmission Date: 20061208
  Serious: Yes (Life-Threatening, Hospitalization)
  Sender: FDA-Public Use
  Company Number: AU200607003399

PATIENT
  Age: 83 Year
  Sex: Male

DRUGS (6)
  1. GEMZAR [Suspect]
     Indication: PANCREATIC CARCINOMA
     Dosage: 800 MG/M2, OTHER,
     Dates: start: 20060505
  2. NOVOBAN /SCH/ (TROPISETRON HYDROCHLORIDE) [Concomitant]
  3. DECADRON [Concomitant]
  4. ISCOVER /GFR/ (CLOPIDOGREL SULFATE) [Concomitant]
  5. SOTALOL HCL [Concomitant]
  6. ASPIRIN TAB [Concomitant]

REACTIONS (8)
  - BLOOD SODIUM DECREASED [None]
  - BLOOD UREA INCREASED [None]
  - HAEMATOCRIT DECREASED [None]
  - HAEMOGLOBIN DECREASED [None]
  - HYPOXIA [None]
  - LUNG CONSOLIDATION [None]
  - LUNG INFILTRATION [None]
  - RED BLOOD CELL COUNT DECREASED [None]
